FAERS Safety Report 4855243-X (Version None)
Quarter: 2005Q4

REPORT INFORMATION
  Report Type: 
  Country: None (occurrence: None)
  Receive Date: 20051215
  Receipt Date: 20050524
  Transmission Date: 20060501
  Serious: Yes (Hospitalization, Disabling)
  Sender: FDA-Public Use
  Company Number: US-MERCK-0505USA02926

PATIENT
  Age: 65 Year
  Sex: Male
  Weight: 106 kg

DRUGS (2)
  1. VIOXX [Suspect]
     Indication: ARTHRITIS
     Route: 048
     Dates: start: 19990101, end: 20030101
  2. VIOXX [Suspect]
     Route: 048
     Dates: start: 19990101, end: 20030101

REACTIONS (4)
  - HYPERTENSION [None]
  - MYOCARDIAL INFARCTION [None]
  - PULMONARY CONGESTION [None]
  - PULMONARY VASCULAR DISORDER [None]
